FAERS Safety Report 24869161 (Version 1)
Quarter: 2025Q1

REPORT INFORMATION
  Report Type: Spontaneous
  Country: US (occurrence: US)
  Receive Date: 20250121
  Receipt Date: 20250121
  Transmission Date: 20250409
  Serious: No
  Sender: PFIZER
  Company Number: US-PFIZER INC-202500013754

PATIENT
  Age: 23 Year
  Sex: Female

DRUGS (4)
  1. ABROCITINIB [Suspect]
     Active Substance: ABROCITINIB
     Indication: Dermatitis atopic
     Dosage: 100 MG, 1X/DAY
  2. ABROCITINIB [Suspect]
     Active Substance: ABROCITINIB
     Dosage: 200 MG, 1X/DAY
  3. ABROCITINIB [Suspect]
     Active Substance: ABROCITINIB
     Dosage: 100 MG, 2X/DAY
  4. ABROCITINIB [Suspect]
     Active Substance: ABROCITINIB
     Dosage: 200 MG, 1X/DAY

REACTIONS (2)
  - Therapeutic product effect incomplete [Unknown]
  - Off label use [Unknown]
